FAERS Safety Report 23768579 (Version 2)
Quarter: 2024Q3

REPORT INFORMATION
  Report Type: Report from Study
  Country: GB (occurrence: GB)
  Receive Date: 20240422
  Receipt Date: 20240702
  Transmission Date: 20241017
  Serious: Yes (Hospitalization, Other)
  Sender: SANDOZ
  Company Number: GB-SANDOZ-SDZ2024GB041035

PATIENT
  Sex: Female

DRUGS (1)
  1. HYRIMOZ [Suspect]
     Active Substance: ADALIMUMAB-ADAZ
     Indication: Crohn^s disease
     Dosage: 40 MG, Q2W (HYRIMOZ 40MG/0.8ML SOLUTION FOR INJECTION PRE-FILLED PENS)
     Route: 058
     Dates: start: 20240123

REACTIONS (5)
  - Hospitalisation [Not Recovered/Not Resolved]
  - Systemic lupus erythematosus [Unknown]
  - Dizziness [Unknown]
  - Vision blurred [Unknown]
  - Rash [Unknown]
